FAERS Safety Report 8919476 (Version 1)
Quarter: 2012Q4

REPORT INFORMATION
  Report Type: Spontaneous
  Country: DK (occurrence: None)
  Receive Date: 20121114
  Receipt Date: 20121114
  Transmission Date: 20130627
  Serious: Yes (Other)
  Sender: FDA-Public Use
  Company Number: 2012MA013340

PATIENT
  Sex: Male

DRUGS (1)
  1. GABAPENTIN [Suspect]
     Indication: NEUROPATHY PERIPHERAL
     Route: 048
     Dates: start: 20120730, end: 20120731

REACTIONS (6)
  - Confusional state [None]
  - Angina pectoris [None]
  - Constipation [None]
  - Respiratory distress [None]
  - Nightmare [None]
  - Renal disorder [None]
